FAERS Safety Report 10191087 (Version 1)
Quarter: 2014Q2

REPORT INFORMATION
  Report Type: Spontaneous
  Country: US (occurrence: None)
  Receive Date: 20140521
  Receipt Date: 20140521
  Transmission Date: 20141212
  Serious: Yes (Hospitalization, Other)
  Sender: FDA-Public Use
  Company Number: None

PATIENT
  Age: 77 Year
  Sex: Male
  Weight: 93 kg

DRUGS (12)
  1. DAPTOMYCIN 500 MG CUBIST PHARMACEUTICALS [Suspect]
     Indication: BURSITIS INFECTIVE
     Route: 042
     Dates: start: 20140125, end: 20140219
  2. DAPTOMYCIN 500 MG CUBIST PHARMACEUTICALS [Suspect]
     Route: 042
     Dates: start: 20140125, end: 20140219
  3. ATORVASTATIN [Concomitant]
  4. BISPROLOL [Concomitant]
  5. CANDESARTAN [Concomitant]
  6. CEFTRIAXONE [Concomitant]
  7. DOXYCYCLINE [Concomitant]
  8. DIGOXIN [Concomitant]
  9. ENOXAPARIN [Concomitant]
  10. FAMOTIDINE [Concomitant]
  11. FLUCONAZOLE [Concomitant]
  12. METHYLPREDNISOLONE [Concomitant]

REACTIONS (1)
  - Eosinophilic pneumonia [None]
